FAERS Safety Report 10667081 (Version 1)
Quarter: 2014Q4

REPORT INFORMATION
  Report Type: Spontaneous
  Country: FR (occurrence: FR)
  Receive Date: 20141222
  Receipt Date: 20141222
  Transmission Date: 20150529
  Serious: Yes (Other)
  Sender: FDA-Public Use
  Company Number: FR-CIPLA LTD.-2014FR02619

PATIENT

DRUGS (9)
  1. DOCETAXEL. [Suspect]
     Active Substance: DOCETAXEL
     Dosage: 70 MG/M2, 1 H
  2. OMBRABULIN [Suspect]
     Active Substance: OMBRABULIN
     Dosage: 20 TO 30 MG/M2, IN COHORT 1, AS 30 MIN INFUSION
  3. CARBOPLATIN. [Suspect]
     Active Substance: CARBOPLATIN
     Indication: NEOPLASM
     Dosage: 5 MG/ML/MIN
     Route: 042
  4. CARBOPLATIN. [Suspect]
     Active Substance: CARBOPLATIN
     Dosage: 6 MG/ML/MIN
     Route: 042
  5. DOCETAXEL. [Suspect]
     Active Substance: DOCETAXEL
     Indication: NEOPLASM
     Dosage: 60 MG/M2, 1 H
  6. PACLITAXEL. [Suspect]
     Active Substance: PACLITAXEL
     Indication: NEOPLASM
     Dosage: UNK, 3 H
  7. CISPLATIN. [Suspect]
     Active Substance: CISPLATIN
     Indication: NEOPLASM
     Dosage: 75 MG/M2, 2 H
  8. DOCETAXEL. [Suspect]
     Active Substance: DOCETAXEL
     Dosage: 75 MG/M2, 1 H
  9. OMBRABULIN [Suspect]
     Active Substance: OMBRABULIN
     Indication: NEOPLASM
     Dosage: 15.5 TO 25 MG/M2, IN COHORT 1, AS 30 MIN INFUSION

REACTIONS (3)
  - Hypocalcaemia [Unknown]
  - Pulmonary embolism [Unknown]
  - Troponin I increased [Unknown]
